FAERS Safety Report 6735899-7 (Version None)
Quarter: 2010Q2

REPORT INFORMATION
  Report Type: 
  Country: None (occurrence: None)
  Receive Date: 20100521
  Receipt Date: 20100513
  Transmission Date: 20101027
  Serious: Yes (Hospitalization)
  Sender: FDA-Public Use
  Company Number: A0860503A

PATIENT
  Age: 46 Year
  Sex: Female

DRUGS (1)
  1. AVANDIA [Suspect]
     Indication: DIABETES MELLITUS
     Dosage: 8MG PER DAY
     Dates: start: 19980101, end: 20040101

REACTIONS (7)
  - CARDIAC FAILURE CONGESTIVE [None]
  - DYSPNOEA [None]
  - DYSPNOEA EXERTIONAL [None]
  - MYOCARDIAL INFARCTION [None]
  - NEOPLASM MALIGNANT [None]
  - OEDEMA [None]
  - WEIGHT INCREASED [None]
